FAERS Safety Report 4729475-5 (Version None)
Quarter: 2005Q3

REPORT INFORMATION
  Report Type: 
  Country: None (occurrence: None)
  Receive Date: 20050721
  Receipt Date: 20050615
  Transmission Date: 20060218
  Serious: No
  Sender: FDA-Public Use
  Company Number: 2005SP001415

PATIENT
  Age: 89 Year
  Sex: Male
  Weight: 83.4619 kg

DRUGS (5)
  1. LUNESTA [Suspect]
     Indication: INSOMNIA
     Dosage: 1 MG;HS;ORAL;  2 MG;HS;ORAL;  3 MG;HS;ORAL
     Route: 048
     Dates: start: 20050101
  2. LUNESTA [Suspect]
     Indication: INSOMNIA
     Dosage: 1 MG;HS;ORAL;  2 MG;HS;ORAL;  3 MG;HS;ORAL
     Route: 048
     Dates: start: 20050101
  3. LUNESTA [Suspect]
     Indication: INSOMNIA
     Dosage: 1 MG;HS;ORAL;  2 MG;HS;ORAL;  3 MG;HS;ORAL
     Route: 048
     Dates: start: 20050501
  4. LASIX [Concomitant]
  5. FOLIC ACID [Concomitant]

REACTIONS (2)
  - DRUG INEFFECTIVE [None]
  - MIDDLE INSOMNIA [None]
